FAERS Safety Report 10094201 (Version 1)
Quarter: 2014Q2

REPORT INFORMATION
  Report Type: Spontaneous
  Country: US (occurrence: None)
  Receive Date: 20140418
  Receipt Date: 20140418
  Transmission Date: 20141212
  Serious: Yes (Hospitalization)
  Sender: FDA-Public Use
  Company Number: 001708138A

PATIENT
  Age: 53 Year
  Sex: Female

DRUGS (6)
  1. PROACTIV+ SKIN SMOOTHING EXFOLIATOR [Suspect]
     Indication: ACNE
     Dosage: ONCE DAILY DERMAL
     Dates: start: 20140319, end: 20140320
  2. PROACTIV+ PORE TARGETING TREATMENT [Suspect]
     Indication: ACNE
     Dosage: ONCE DAILY DERMAL
     Dates: start: 20140319, end: 20140320
  3. PROACTIV+ COMPLEXION PERFECTING HYDRATOR [Suspect]
     Indication: ACNE
     Dosage: ONCE DAILY DERMAL
     Dates: start: 20140319, end: 20140320
  4. PROACTIV+ SKIN PURIFYING MASK [Suspect]
     Indication: ACNE
     Dosage: ONCE DAILY DERMAL
  5. PROACTIV+ MARK FADING PADS [Suspect]
     Indication: ACNE
     Dosage: ONCE DAILY DERMAL
     Dates: start: 20140319, end: 20140320
  6. VITACLEAR VITAMIN SUPPLEMENTS [Concomitant]

REACTIONS (3)
  - Erythema [None]
  - Swollen tongue [None]
  - Throat tightness [None]
